FAERS Safety Report 23329320 (Version 1)
Quarter: 2023Q4

REPORT INFORMATION
  Report Type: Spontaneous
  Country: FR (occurrence: FR)
  Receive Date: 20231222
  Receipt Date: 20231222
  Transmission Date: 20240110
  Serious: Yes (Other)
  Sender: FDA-Public Use
  Company Number: FR-AFSSAPS-RN2023001354

PATIENT
  Age: 55 Year
  Sex: Female

DRUGS (3)
  1. CARBOPLATIN [Suspect]
     Active Substance: CARBOPLATIN
     Indication: Product used for unknown indication
     Dosage: UNK,D1-21 (D1 ON 06/22, C2 ON 07/13) END OF CHEMOTHERAPY ON 08/31
     Route: 042
     Dates: start: 20230622, end: 20230831
  2. PACLITAXEL [Suspect]
     Active Substance: PACLITAXEL
     Indication: Product used for unknown indication
     Dosage: UNK,1-21 (D1 ON 06/22, C2 ON 07/13) END OF CHEMOTHERAPY ON 08/31
     Route: 042
     Dates: start: 20230622, end: 20230831
  3. IMFINZI [Suspect]
     Active Substance: DURVALUMAB
     Indication: Adenocarcinoma
     Dosage: UNK
     Route: 042
     Dates: start: 20231010

REACTIONS (1)
  - Interstitial lung disease [Not Recovered/Not Resolved]

NARRATIVE: CASE EVENT DATE: 20231113
